FAERS Safety Report 12391691 (Version 8)
Quarter: 2017Q1

REPORT INFORMATION
  Report Type: Report from Study
  Country: BR (occurrence: BR)
  Receive Date: 20160522
  Receipt Date: 20170314
  Transmission Date: 20170428
  Serious: Yes (Hospitalization, Other)
  Sender: FDA-Public Use
  Company Number: PHHY2015BR043162

PATIENT
  Age: 11 Year
  Sex: Male
  Weight: 35.2 kg

DRUGS (8)
  1. EXJADE [Suspect]
     Active Substance: DEFERASIROX
     Dosage: 1125 MG, QD (2 DISPERSIBLETABLETS OF 500 MG AND 1 TABLET OF 125 MG)
     Route: 065
  2. TOPIRAMATE. [Concomitant]
     Active Substance: TOPIRAMATE
     Indication: HEADACHE
     Dosage: 2 DF, QD
     Route: 048
  3. EXJADE [Suspect]
     Active Substance: DEFERASIROX
     Dosage: 2 DF (2 TABLETS OF 500 MG A DAY)
     Route: 048
  4. EXJADE [Suspect]
     Active Substance: DEFERASIROX
     Dosage: 55 MG/KG, QD (1000 MG AND 750 MG)
     Route: 048
     Dates: start: 201407
  5. FOLIC ACID. [Concomitant]
     Active Substance: FOLIC ACID
     Indication: ANAEMIA
     Dosage: 1 DF, QD
     Route: 048
  6. EXJADE [Suspect]
     Active Substance: DEFERASIROX
     Indication: BONE MARROW FAILURE
     Dosage: 30 MG/KG (2 TABLETS OF 500 MG), QD
     Route: 048
  7. PYRIDOXINE [Concomitant]
     Active Substance: PYRIDOXINE
     Indication: VITAMIN B6 DEFICIENCY
     Dosage: 1 DF, QD
     Route: 048
  8. VITAMIN B [Concomitant]
     Active Substance: VITAMIN B
     Indication: PRODUCT USED FOR UNKNOWN INDICATION
     Dosage: 1 DF, QD
     Route: 048

REACTIONS (21)
  - Sideroblastic anaemia [Unknown]
  - Headache [Recovering/Resolving]
  - Hepatic siderosis [Unknown]
  - Influenza [Recovering/Resolving]
  - Haemoglobin decreased [Unknown]
  - Cough [Recovering/Resolving]
  - Pyrexia [Recovered/Resolved]
  - Pneumonia [Unknown]
  - Catarrh [Recovering/Resolving]
  - Congenital anaemia [Unknown]
  - Asthenia [Unknown]
  - Vomiting [Recovered/Resolved]
  - Bone marrow failure [Not Recovered/Not Resolved]
  - Asthma [Recovering/Resolving]
  - Product taste abnormal [Recovering/Resolving]
  - Serum ferritin increased [Unknown]
  - Decreased immune responsiveness [Unknown]
  - Vomiting [Recovering/Resolving]
  - Pneumonia [Recovered/Resolved]
  - Pain in extremity [Not Recovered/Not Resolved]
  - Malaise [Unknown]

NARRATIVE: CASE EVENT DATE: 20150403
